FAERS Safety Report 23346662 (Version 1)
Quarter: 2023Q4

REPORT INFORMATION
  Report Type: Spontaneous
  Country: US (occurrence: None)
  Receive Date: 20231227
  Receipt Date: 20231227
  Transmission Date: 20240110
  Serious: Yes (Hospitalization)
  Sender: FDA-Public Use
  Company Number: None

PATIENT
  Sex: Female

DRUGS (6)
  1. PULMOZYME [Suspect]
     Active Substance: DORNASE ALFA
     Route: 055
  2. ALBUTEROL NEB 0.083% [Concomitant]
  3. INH SOL 3=1 [Concomitant]
  4. CAYSTON INH 75MG [Concomitant]
  5. SODIUM CHLORIDE INHALATION SOLUTION [Concomitant]
     Active Substance: SODIUM CHLORIDE
  6. TOBRAMYCIN [Concomitant]
     Active Substance: TOBRAMYCIN

REACTIONS (1)
  - Pulmonary function test abnormal [None]
